FAERS Safety Report 5930263-2 (Version None)
Quarter: 2008Q4

REPORT INFORMATION
  Report Type: 
  Country: None (occurrence: None)
  Receive Date: 20081024
  Receipt Date: 20081016
  Transmission Date: 20090506
  Serious: Yes (Hospitalization)
  Sender: FDA-Public Use
  Company Number: FR-PFIZER INC-2008087660

PATIENT
  Sex: Female

DRUGS (6)
  1. CELEBREX [Suspect]
     Route: 048
     Dates: end: 20081001
  2. PRAZEPAM [Suspect]
     Indication: ANXIETY
     Route: 048
     Dates: end: 20081001
  3. NOCTRAN 10 [Suspect]
     Dosage: TEXT:1 DF
     Route: 048
     Dates: end: 20081001
  4. DEROXAT [Suspect]
     Route: 048
     Dates: end: 20081001
  5. PROPOFAN [Suspect]
     Dosage: TEXT:1 DF
     Route: 048
     Dates: end: 20081001
  6. SOTALOL [Concomitant]

REACTIONS (1)
  - CONFUSIONAL STATE [None]
